FAERS Safety Report 9919176 (Version 3)
Quarter: 2014Q1

REPORT INFORMATION
  Report Type: Spontaneous
  Country: MX (occurrence: MX)
  Receive Date: 20140224
  Receipt Date: 20140314
  Transmission Date: 20141002
  Serious: Yes (Other)
  Sender: FDA-Public Use
  Company Number: MX-009507513-1402MEX008780

PATIENT
  Age: 31 Year
  Sex: Female

DRUGS (2)
  1. IMPLANON [Suspect]
     Indication: CONTRACEPTION
     Dosage: 60-70 MICROGRAM/DAY, TRIENIAL; SECOND IMPLANON ON THE RIGHT ARM
     Route: 059
     Dates: start: 20120601
  2. IMPLANON [Suspect]
     Dosage: 60-70 MICROGRAM/DAY, TRIENIAL , FIRST IMPLANON ON THE LEFT ARM
     Route: 059

REACTIONS (11)
  - Blood prolactin increased [Not Recovered/Not Resolved]
  - Surgery [Unknown]
  - Hormone level abnormal [Not Recovered/Not Resolved]
  - Device difficult to use [Not Recovered/Not Resolved]
  - Acne [Not Recovered/Not Resolved]
  - Breast pain [Not Recovered/Not Resolved]
  - Menstrual disorder [Not Recovered/Not Resolved]
  - Dizziness [Not Recovered/Not Resolved]
  - Alopecia [Not Recovered/Not Resolved]
  - Medical device complication [Not Recovered/Not Resolved]
  - Device difficult to use [Unknown]
